FAERS Safety Report 17441928 (Version 1)
Quarter: 2020Q1

REPORT INFORMATION
  Report Type: Spontaneous
  Country: FR (occurrence: FR)
  Receive Date: 20200220
  Receipt Date: 20200220
  Transmission Date: 20200409
  Serious: Yes (Hospitalization)
  Sender: FDA-Public Use
  Company Number: FR-BAUSCH-BL-2020-004626

PATIENT
  Age: 63 Year
  Sex: Male
  Weight: 82 kg

DRUGS (3)
  1. GENTAMICINE [Suspect]
     Active Substance: GENTAMICIN
     Indication: ENDOCARDITIS BACTERIAL
     Route: 042
     Dates: start: 20200121, end: 20200127
  2. AMOXICILLINE [Suspect]
     Active Substance: AMOXICILLIN
     Indication: ENDOCARDITIS BACTERIAL
     Route: 042
     Dates: start: 20200121
  3. VANCOMYCINE [Suspect]
     Active Substance: VANCOMYCIN
     Indication: ENDOCARDITIS BACTERIAL
     Route: 042
     Dates: start: 20200122, end: 20200122

REACTIONS (2)
  - Crystalluria [Recovering/Resolving]
  - Acute kidney injury [Recovering/Resolving]

NARRATIVE: CASE EVENT DATE: 20200126
